FAERS Safety Report 18563930 (Version 1)
Quarter: 2020Q4

REPORT INFORMATION
  Report Type: Spontaneous
  Country: US (occurrence: US)
  Receive Date: 20201130
  Receipt Date: 20201130
  Transmission Date: 20210114
  Serious: Yes (Hospitalization)
  Sender: FDA-Public Use
  Company Number: None

PATIENT
  Age: 59 Year
  Sex: Female

DRUGS (13)
  1. GLUCOSAMINE [Concomitant]
     Active Substance: GLUCOSAMINE
  2. PROBIOTIC [Concomitant]
     Active Substance: PROBIOTICS NOS
  3. POTASSIUM [Concomitant]
     Active Substance: POTASSIUM
  4. CALCIUM/D [Concomitant]
  5. VITAMIN C [Concomitant]
     Active Substance: ASCORBIC ACID
  6. HUMIRA [Suspect]
     Active Substance: ADALIMUMAB
     Indication: CROHN^S DISEASE
     Dosage: ?          OTHER FREQUENCY:EVERY 14 DAYS;?
     Route: 058
     Dates: start: 20161218
  7. ANTIBIOTIC CRE [Concomitant]
  8. CHOLESTYRAM POW [Concomitant]
  9. VITAMIN D3 [Concomitant]
     Active Substance: CHOLECALCIFEROL
  10. FIBERCON TAB [Concomitant]
  11. FENOFIBRATE. [Concomitant]
     Active Substance: FENOFIBRATE
  12. WOMENS DAILY  CHW [Concomitant]
  13. VITAMIN B12 [Concomitant]
     Active Substance: CYANOCOBALAMIN

REACTIONS (1)
  - Surgery [None]

NARRATIVE: CASE EVENT DATE: 20201127
